FAERS Safety Report 5922151-2 (Version None)
Quarter: 2008Q4

REPORT INFORMATION
  Report Type: 
  Country: None (occurrence: None)
  Receive Date: 20081017
  Receipt Date: 20081010
  Transmission Date: 20090506
  Serious: Yes (Other)
  Sender: FDA-Public Use
  Company Number: US-AVENTIS-200815693US

PATIENT
  Sex: Female
  Weight: 79.1 kg

DRUGS (8)
  1. LANTUS [Suspect]
     Route: 058
     Dates: start: 20000101
  2. PROGRAF [Concomitant]
     Indication: PROPHYLAXIS
     Dosage: DOSE: UNK
  3. PREDNISONE TAB [Concomitant]
     Dosage: DOSE: UNK
  4. IMURAN                             /00001501/ [Concomitant]
     Indication: PROPHYLAXIS
     Dosage: DOSE: UNK
  5. PREMARIN [Concomitant]
     Dosage: DOSE: UNK
  6. ASPIRIN [Concomitant]
     Dosage: DOSE: UNK
  7. NOVOLOG [Concomitant]
     Dosage: DOSE: SLIDING SCALE
  8. HUMALOG [Concomitant]
     Dosage: DOSE: SLIDING SCALE

REACTIONS (6)
  - BLOOD GLUCOSE INCREASED [None]
  - DRUG INEFFECTIVE [None]
  - FALL [None]
  - FIBULA FRACTURE [None]
  - LIGAMENT RUPTURE [None]
  - TIBIA FRACTURE [None]
